FAERS Safety Report 7816683-X (Version None)
Quarter: 2011Q4

REPORT INFORMATION
  Report Type: 
  Country: None (occurrence: None)
  Receive Date: 20111017
  Receipt Date: 20111011
  Transmission Date: 20120403
  Serious: No
  Sender: FDA-Public Use
  Company Number: US-PFIZER INC-2011243860

PATIENT
  Sex: Male
  Weight: 81.633 kg

DRUGS (3)
  1. VIAGRA [Suspect]
     Indication: HYPERTENSION
     Dosage: 100 MG, 2X/WEEK
     Dates: start: 20080101
  2. PRINIVIL [Concomitant]
     Indication: HYPERTENSION
     Dosage: 10 MG, DAILY
  3. AMILORIDE [Concomitant]
     Indication: HYPERTENSION
     Dosage: 1 MG, DAILY

REACTIONS (1)
  - DRUG INEFFECTIVE FOR UNAPPROVED INDICATION [None]
